FAERS Safety Report 16382520 (Version 1)
Quarter: 2019Q2

REPORT INFORMATION
  Report Type: Report from Study
  Country: None (occurrence: GT)
  Receive Date: 20190603
  Receipt Date: 20190603
  Transmission Date: 20190711
  Serious: Yes (Hospitalization, Other)
  Sender: FDA-Public Use
  Company Number: GT-ABBVIE-19S-069-2805657-00

PATIENT
  Age: 28 Year
  Sex: Male
  Weight: 74.91 kg

DRUGS (1)
  1. ZEMPLAR [Suspect]
     Active Substance: PARICALCITOL
     Indication: HYPERPARATHYROIDISM SECONDARY
     Route: 042
     Dates: start: 20160701

REACTIONS (3)
  - Device related infection [Recovering/Resolving]
  - Traumatic lung injury [Recovering/Resolving]
  - Tracheostomy [Recovering/Resolving]

NARRATIVE: CASE EVENT DATE: 201902
